FAERS Safety Report 5032047-9 (Version None)
Quarter: 2006Q2

REPORT INFORMATION
  Report Type: 
  Country: None (occurrence: None)
  Receive Date: 20060619
  Receipt Date: 20060608
  Transmission Date: 20061013
  Serious: Yes (Disabling)
  Sender: FDA-Public Use
  Company Number: B0411245A

PATIENT
  Age: 66 Year
  Sex: Female

DRUGS (8)
  1. RELENZA [Suspect]
     Indication: INFLUENZA
     Dosage: 2 TWICE PER DAY INHALED
     Route: 055
     Dates: start: 20060128, end: 20060129
  2. HUSCODE TABLET (HUSCODE) [Suspect]
     Indication: COUGH
     Dosage: 2 THREE TIMES PER DAY ORAL
     Route: 048
     Dates: start: 20060127, end: 20060128
  3. DOMPERIDONE [Concomitant]
  4. DEXTROMETHORPHAN HBR [Concomitant]
  5. GLORIAMIN [Concomitant]
  6. OSELTAMIVIR PHOSPHATE [Concomitant]
  7. ELECTROLYTES [Concomitant]
  8. SUBVITAN N [Concomitant]

REACTIONS (3)
  - ANOSMIA [None]
  - DYSURIA [None]
  - PYREXIA [None]
